FAERS Safety Report 25384030 (Version 2)
Quarter: 2025Q3

REPORT INFORMATION
  Report Type: Spontaneous
  Country: JP (occurrence: JP)
  Receive Date: 20250602
  Receipt Date: 20250810
  Transmission Date: 20251021
  Serious: Yes (Other)
  Sender: ALEXION PHARMACEUTICALS
  Company Number: JP-ASTRAZENECA-250016329_012620_P_1

PATIENT
  Age: 7 Decade
  Sex: Female

DRUGS (4)
  1. TRUQAP [Suspect]
     Active Substance: CAPIVASERTIB
     Indication: Breast cancer
     Dosage: FOUR CONSECUTIVE DAYS ON TREATMENT FOLLOWED BY THREE DAYS OFF TREATMENT.
  2. TRUQAP [Suspect]
     Active Substance: CAPIVASERTIB
     Dosage: FOUR CONSECUTIVE DAYS ON TREATMENT FOLLOWED BY THREE DAYS OFF TREATMENT.
  3. FULVESTRANT [Suspect]
     Active Substance: FULVESTRANT
     Indication: Breast cancer
     Dosage: 500 MILLIGRAM, Q2W
  4. FULVESTRANT [Suspect]
     Active Substance: FULVESTRANT

REACTIONS (5)
  - Metastases to central nervous system [Unknown]
  - Metastases to lung [Unknown]
  - Metastases to liver [Unknown]
  - Metastases to bone [Unknown]
  - Rash [Recovered/Resolved]
